FAERS Safety Report 23621279 (Version 17)
Quarter: 2025Q1

REPORT INFORMATION
  Report Type: Report from Study
  Country: CH (occurrence: CH)
  Receive Date: 20240312
  Receipt Date: 20250307
  Transmission Date: 20250409
  Serious: Yes (Death, Hospitalization, Other)
  Sender: ABBVIE
  Company Number: CH-ABBVIE-22K-151-4503562-00

PATIENT
  Age: 78 Year
  Sex: Female
  Weight: 58 kg

DRUGS (31)
  1. VENETOCLAX [Suspect]
     Active Substance: VENETOCLAX
     Indication: Chronic lymphocytic leukaemia
     Route: 048
     Dates: start: 20220525, end: 20220530
  2. VENETOCLAX [Suspect]
     Active Substance: VENETOCLAX
     Indication: Chronic lymphocytic leukaemia
     Route: 048
     Dates: start: 20220601, end: 20220607
  3. VENETOCLAX [Suspect]
     Active Substance: VENETOCLAX
     Indication: Chronic lymphocytic leukaemia
     Route: 048
     Dates: start: 20220608, end: 20220614
  4. VENETOCLAX [Suspect]
     Active Substance: VENETOCLAX
     Indication: Chronic lymphocytic leukaemia
     Route: 048
     Dates: start: 20220615, end: 20220621
  5. VENETOCLAX [Suspect]
     Active Substance: VENETOCLAX
     Indication: Chronic lymphocytic leukaemia
     Route: 048
     Dates: start: 20220622, end: 20220627
  6. VENETOCLAX [Suspect]
     Active Substance: VENETOCLAX
     Indication: Chronic lymphocytic leukaemia
     Route: 048
     Dates: start: 20220628, end: 20230711
  7. VENETOCLAX [Suspect]
     Active Substance: VENETOCLAX
     Indication: Chronic lymphocytic leukaemia
     Route: 048
     Dates: start: 20230910, end: 20230910
  8. VENETOCLAX [Suspect]
     Active Substance: VENETOCLAX
     Indication: Chronic lymphocytic leukaemia
     Route: 048
     Dates: start: 20230911, end: 20230911
  9. VENETOCLAX [Suspect]
     Active Substance: VENETOCLAX
     Indication: Chronic lymphocytic leukaemia
     Route: 048
     Dates: start: 20230909, end: 20230909
  10. VENETOCLAX [Suspect]
     Active Substance: VENETOCLAX
     Indication: Chronic lymphocytic leukaemia
     Route: 048
     Dates: start: 20231128, end: 20241111
  11. VENETOCLAX [Suspect]
     Active Substance: VENETOCLAX
     Indication: Chronic lymphocytic leukaemia
     Route: 048
     Dates: start: 20230912, end: 20231118
  12. VENETOCLAX [Suspect]
     Active Substance: VENETOCLAX
     Indication: Chronic lymphocytic leukaemia
     Route: 048
     Dates: start: 20230712, end: 20230908
  13. VENETOCLAX [Suspect]
     Active Substance: VENETOCLAX
     Indication: Chronic lymphocytic leukaemia
     Route: 048
     Dates: start: 20231119, end: 20231127
  14. VENETOCLAX [Suspect]
     Active Substance: VENETOCLAX
     Indication: Chronic lymphocytic leukaemia
     Route: 048
     Dates: start: 20240227, end: 20240815
  15. ALLOPURINOL [Concomitant]
     Active Substance: ALLOPURINOL
     Indication: Product used for unknown indication
     Dosage: ALLOPURINOL MEPHA
     Route: 048
     Dates: start: 20220517, end: 20220531
  16. FOLIC ACID [Concomitant]
     Active Substance: FOLIC ACID
     Indication: Folate deficiency
     Route: 048
     Dates: start: 20211207
  17. VALTREX [Concomitant]
     Active Substance: VALACYCLOVIR HYDROCHLORIDE
     Indication: Product used for unknown indication
     Route: 048
     Dates: start: 20220511, end: 20230209
  18. Vi de 3 [Concomitant]
     Indication: Vitamin D deficiency
     Route: 048
     Dates: start: 20190917
  19. NEBIVOLOL [Concomitant]
     Active Substance: NEBIVOLOL
     Indication: Hypertension
     Route: 048
     Dates: start: 20191213, end: 20240226
  20. NEBIVOLOL [Concomitant]
     Active Substance: NEBIVOLOL
     Indication: Hypertension
     Dosage: FIRST ADMIN DATE: 2024
     Route: 048
  21. Felodipin Mepha [Concomitant]
     Indication: Hypertension
     Route: 048
     Dates: start: 20201210, end: 20240320
  22. PERINDOPRIL [Concomitant]
     Active Substance: PERINDOPRIL
     Indication: Hypertension
     Route: 048
  23. MAGNESIUM [Concomitant]
     Active Substance: MAGNESIUM
     Indication: Product used for unknown indication
     Route: 048
     Dates: start: 20220104, end: 20220530
  24. PANTOZOL [Concomitant]
     Active Substance: PANTOPRAZOLE SODIUM
     Indication: Barrett^s oesophagus
     Route: 048
     Dates: start: 20190809, end: 20240520
  25. Temesta [Concomitant]
     Indication: Product used for unknown indication
     Route: 048
     Dates: start: 20210401, end: 20220530
  26. HERBALS\PLANTAGO OVATA LEAF [Concomitant]
     Active Substance: HERBALS\PLANTAGO OVATA LEAF
     Indication: Product used for unknown indication
     Route: 048
     Dates: start: 20200821, end: 20221214
  27. ESTRADIOL [Concomitant]
     Active Substance: ESTRADIOL
     Indication: Product used for unknown indication
     Route: 003
     Dates: start: 20191101, end: 20220530
  28. Mirtazapine Helvepharm [Concomitant]
     Indication: Sleep disorder
     Route: 048
     Dates: start: 20210401, end: 20240701
  29. MOXONIDINE [Concomitant]
     Active Substance: MOXONIDINE
     Indication: Product used for unknown indication
     Dosage: MITE
     Route: 048
     Dates: start: 20210401, end: 20240320
  30. ATORVASTATIN [Concomitant]
     Active Substance: ATORVASTATIN
     Indication: Product used for unknown indication
     Route: 048
     Dates: start: 20190820, end: 20220530
  31. BACTRIM [Concomitant]
     Active Substance: SULFAMETHOXAZOLE\TRIMETHOPRIM
     Indication: Product used for unknown indication
     Route: 048
     Dates: start: 20220511, end: 20240701

REACTIONS (41)
  - Richter^s syndrome [Fatal]
  - Thrombocytopenia [Not Recovered/Not Resolved]
  - Blood alkaline phosphatase increased [Not Recovered/Not Resolved]
  - Neutropenia [Recovered/Resolved]
  - Neutropenia [Recovered/Resolved]
  - Urinary tract infection [Recovered/Resolved]
  - Infection [Recovered/Resolved]
  - Dermoid cyst [Recovered/Resolved]
  - Infection [Recovered/Resolved]
  - COVID-19 [Recovered/Resolved]
  - Neutropenia [Not Recovered/Not Resolved]
  - Diarrhoea [Unknown]
  - Aspartate aminotransferase increased [Recovered/Resolved]
  - Renal impairment [Unknown]
  - Lymphadenopathy [Unknown]
  - Neutropenia [Recovered/Resolved]
  - Back pain [Recovered/Resolved]
  - Blood creatinine increased [Recovered/Resolved]
  - Urinary tract infection [Recovered/Resolved]
  - Neutropenia [Not Recovered/Not Resolved]
  - Anaemia [Not Recovered/Not Resolved]
  - Thrombocytopenia [Unknown]
  - Anaemia [Not Recovered/Not Resolved]
  - Renal failure [Recovering/Resolving]
  - Gamma-glutamyltransferase increased [Not Recovered/Not Resolved]
  - Alanine aminotransferase increased [Not Recovered/Not Resolved]
  - Blood creatinine increased [Not Recovered/Not Resolved]
  - Blood potassium increased [Recovered/Resolved]
  - Splenomegaly [Unknown]
  - Tumour lysis syndrome [Recovered/Resolved]
  - Pancytopenia [Recovered/Resolved]
  - White blood cell count decreased [Unknown]
  - Renal failure [Recovered/Resolved]
  - Richter^s syndrome [Not Recovered/Not Resolved]
  - Blood uric acid decreased [Not Recovered/Not Resolved]
  - Lymphadenopathy [Unknown]
  - Blood uric acid increased [Not Recovered/Not Resolved]
  - Constipation [Recovering/Resolving]
  - Neutropenia [Recovered/Resolved]
  - Dyspepsia [Not Recovered/Not Resolved]
  - Richter^s syndrome [Recovered/Resolved]

NARRATIVE: CASE EVENT DATE: 20220606
